FAERS Safety Report 8506285-4 (Version None)
Quarter: 2012Q3

REPORT INFORMATION
  Report Type: 
  Country: None (occurrence: None)
  Receive Date: 20120712
  Receipt Date: 20120702
  Transmission Date: 20120928
  Serious: No
  Sender: FDA-Public Use
  Company Number: US-ASTRAZENECA-2012SE44940

PATIENT
  Age: 57 Year
  Sex: Female

DRUGS (3)
  1. XGEVA [Concomitant]
     Indication: METASTASES TO BONE
  2. GEMZAR [Concomitant]
  3. FASLODEX [Suspect]
     Indication: BREAST CANCER METASTATIC
     Dosage: RECEIVES 500 MG OF MEDICATION, 250 MG ON EACH GLUTES ON DAY 1, 15, 29 AND ONCE MONTHLY AFTER
     Route: 030
     Dates: start: 20111213

REACTIONS (2)
  - ASTHENIA [None]
  - NEURALGIA [None]
